FAERS Safety Report 8863287 (Version 2)
Quarter: 2014Q3

REPORT INFORMATION
  Report Type: Report from Study
  Country: US (occurrence: US)
  Receive Date: 20121025
  Receipt Date: 20140911
  Transmission Date: 20150326
  Serious: Yes (Hospitalization, Other)
  Sender: FDA-Public Use
  Company Number: US-ROCHE-1114126

PATIENT
  Sex: Male

DRUGS (3)
  1. RITUXAN [Suspect]
     Active Substance: RITUXIMAB
     Indication: HAIRY CELL LEUKAEMIA
     Route: 042
     Dates: start: 20060621
  2. INTERFERON ALFA-2A [Suspect]
     Active Substance: INTERFERON ALFA-2A
     Indication: HAIRY CELL LEUKAEMIA
     Route: 065
  3. RITUXAN [Suspect]
     Active Substance: RITUXIMAB
     Indication: NON-HODGKIN^S LYMPHOMA

REACTIONS (11)
  - Fatigue [Unknown]
  - Pain [Unknown]
  - Pneumonia [Unknown]
  - Oedema peripheral [Unknown]
  - Pallor [Unknown]
  - Bone marrow failure [Unknown]
  - Asthenia [Unknown]
  - Off label use [Unknown]
  - Weight decreased [Recovering/Resolving]
  - Depression [Unknown]
  - Haemolytic anaemia [Unknown]
